FAERS Safety Report 20518300 (Version 1)
Quarter: 2022Q1

REPORT INFORMATION
  Report Type: Spontaneous
  Country: US (occurrence: None)
  Receive Date: 20220224
  Receipt Date: 20220224
  Transmission Date: 20220423
  Serious: Yes (Other)
  Sender: FDA-Public Use
  Company Number: None

PATIENT
  Age: 31 Year
  Sex: Male

DRUGS (1)
  1. SUNOSI [Suspect]
     Active Substance: SOLRIAMFETOL
     Indication: Hypersomnia
     Dosage: OTHER FREQUENCY : ONCE;?
     Route: 048
     Dates: start: 20220201, end: 20220201

REACTIONS (3)
  - Anger [None]
  - Injury [None]
  - Abnormal behaviour [None]

NARRATIVE: CASE EVENT DATE: 20220201
